FAERS Safety Report 25475654 (Version 1)
Quarter: 2025Q2

REPORT INFORMATION
  Report Type: Report from Study
  Country: US (occurrence: US)
  Receive Date: 20250624
  Receipt Date: 20250624
  Transmission Date: 20250716
  Serious: Yes (Other)
  Sender: GILEAD
  Company Number: US-GILEAD-2025-0714090

PATIENT
  Age: 34 Year
  Sex: Male

DRUGS (5)
  1. BICTEGRAVIR\EMTRICITABINE\TENOFOVIR ALAFENAMIDE [Suspect]
     Active Substance: BICTEGRAVIR\EMTRICITABINE\TENOFOVIR ALAFENAMIDE
     Indication: HIV infection
     Dosage: 50-200-25MG TAKING 1 TABLET BY MOUTH ONCE DAILY.
     Route: 048
     Dates: start: 20250518
  2. ARIPIPRAZOLE [Concomitant]
     Active Substance: ARIPIPRAZOLE
  3. VALPROIC ACID [Concomitant]
     Active Substance: VALPROIC ACID
  4. SERTRALINE [Concomitant]
     Active Substance: SERTRALINE HYDROCHLORIDE
  5. TRAZODONE [Concomitant]
     Active Substance: TRAZODONE HYDROCHLORIDE

REACTIONS (5)
  - Deafness unilateral [Not Recovered/Not Resolved]
  - Product use issue [Unknown]
  - Diarrhoea [Not Recovered/Not Resolved]
  - Somnolence [Not Recovered/Not Resolved]
  - Hunger [Not Recovered/Not Resolved]
